FAERS Safety Report 9696380 (Version 2)
Quarter: 2014Q1

REPORT INFORMATION
  Report Type: Spontaneous
  Country: IT (occurrence: IT)
  Receive Date: 20131119
  Receipt Date: 20140206
  Transmission Date: 20141002
  Serious: Yes (Life-Threatening)
  Sender: FDA-Public Use
  Company Number: PHHY2013IT130627

PATIENT
  Age: 81 Year
  Sex: Male

DRUGS (4)
  1. MEROPENEM [Suspect]
     Indication: LUNG INFECTION
     Dosage: 2 G, QD
     Route: 042
     Dates: start: 20131028, end: 20131104
  2. FINASTERIDE [Concomitant]
     Dosage: 1 DF, UNK
  3. LASIX//FUROSEMIDE [Concomitant]
     Dosage: 25 MG, UNK
  4. MIRTAZAPINE [Concomitant]
     Dosage: 30 MG, UNK

REACTIONS (2)
  - Leukopenia [Recovered/Resolved]
  - Thrombocytopenia [Recovered/Resolved]
